FAERS Safety Report 6756242-3 (Version None)
Quarter: 2010Q2

REPORT INFORMATION
  Report Type: 
  Country: None (occurrence: None)
  Receive Date: 20100604
  Receipt Date: 20100524
  Transmission Date: 20101027
  Serious: Yes (Other)
  Sender: FDA-Public Use
  Company Number: US-WYE-H15377010

PATIENT
  Age: 44 Year
  Sex: Female
  Weight: 81.72 kg

DRUGS (3)
  1. EFFEXOR XR [Suspect]
     Indication: DEPRESSION
     Dosage: 300 MG DAILY FROM AN UNKNOWN DATE TO 03-MAY-2010, THEN WAS 225 MG DAILY FROM 04-MAY-2010
     Route: 048
  2. AMBIEN [Interacting]
     Dosage: UNKNOWN
  3. XANAX [Concomitant]

REACTIONS (15)
  - ABNORMAL BEHAVIOUR [None]
  - CONDITION AGGRAVATED [None]
  - CONTUSION [None]
  - CRYING [None]
  - DEPRESSION [None]
  - DRUG INTERACTION [None]
  - DRUG WITHDRAWAL SYNDROME [None]
  - DYSPNOEA [None]
  - FACE INJURY [None]
  - FALL [None]
  - HYPERTENSION [None]
  - NAUSEA [None]
  - THINKING ABNORMAL [None]
  - UNEVALUABLE EVENT [None]
  - VOMITING [None]
